FAERS Safety Report 8800854 (Version 1)
Quarter: 2012Q4

REPORT INFORMATION
  Report Type: 
  Country: NL (occurrence: NL)
  Receive Date: 20120921
  Receipt Date: 20120921
  Transmission Date: 20130627
  Serious: Yes (Other)
  Sender: FDA-Public Use
  Company Number: NL-PFIZER INC-2012230469

PATIENT
  Sex: Male
  Weight: 115 kg

DRUGS (1)
  1. XANAX [Suspect]
     Indication: SLEEP DISORDER
     Dosage: 1.5 mg, 1x/day
     Dates: start: 1992

REACTIONS (9)
  - Loss of consciousness [Unknown]
  - Withdrawal syndrome [Unknown]
  - Incorrect dose administered [Unknown]
  - Disturbance in attention [Unknown]
  - Suspected counterfeit product [Unknown]
  - Insomnia [Unknown]
  - Tremor [Unknown]
  - Anxiety [Unknown]
  - Hypokinesia [Unknown]
